FAERS Safety Report 25332088 (Version 3)
Quarter: 2025Q2

REPORT INFORMATION
  Report Type: Report from Study
  Country: CA (occurrence: CA)
  Receive Date: 20250519
  Receipt Date: 20250630
  Transmission Date: 20250717
  Serious: Yes (Other)
  Sender: MERCK SHARP & DOHME LLC
  Company Number: CA-009507513-2255017

PATIENT
  Sex: Male

DRUGS (6)
  1. KEYTRUDA [Suspect]
     Active Substance: PEMBROLIZUMAB
     Indication: Transitional cell carcinoma metastatic
     Dosage: 200 MG IV, Q3W
     Route: 042
     Dates: start: 20250116, end: 20250116
  2. KEYTRUDA [Suspect]
     Active Substance: PEMBROLIZUMAB
     Indication: Transitional cell carcinoma metastatic
     Dosage: 200 MG IV/Q3W
     Route: 042
     Dates: start: 20250417, end: 20250417
  3. KEYTRUDA [Suspect]
     Active Substance: PEMBROLIZUMAB
     Indication: Transitional cell carcinoma metastatic
     Dosage: 200 MG IV, Q3W
     Route: 042
     Dates: start: 20250320, end: 20250320
  4. ENFORTUMAB VEDOTIN [Suspect]
     Active Substance: ENFORTUMAB VEDOTIN
     Indication: Transitional cell carcinoma metastatic
     Route: 065
     Dates: start: 20250116, end: 20250116
  5. CANDESARTAN [Concomitant]
     Active Substance: CANDESARTAN
  6. TYLENOL [Concomitant]
     Active Substance: ACETAMINOPHEN

REACTIONS (10)
  - Central venous catheterisation [Unknown]
  - Inappropriate schedule of product administration [Unknown]
  - Constipation [Unknown]
  - Fatigue [Unknown]
  - Pain [Unknown]
  - Dry mouth [Unknown]
  - Vomiting [Unknown]
  - Nausea [Unknown]
  - Oedema [Unknown]
  - Dysphagia [Unknown]

NARRATIVE: CASE EVENT DATE: 20250101
